FAERS Safety Report 6848061-4 (Version None)
Quarter: 2010Q3

REPORT INFORMATION
  Report Type: 
  Country: None (occurrence: None)
  Receive Date: 20100714
  Receipt Date: 20100604
  Transmission Date: 20110219
  Serious: Yes (Life-Threatening, Hospitalization)
  Sender: FDA-Public Use
  Company Number: LEO-2010-00590

PATIENT
  Age: 63 Year
  Sex: Female
  Weight: 79 kg

DRUGS (1)
  1. INNOHEP [Suspect]
     Indication: DIALYSIS
     Dosage: HEMODIALYSIS

REACTIONS (4)
  - ACUTE LUNG INJURY [None]
  - ACUTE PULMONARY OEDEMA [None]
  - C-REACTIVE PROTEIN INCREASED [None]
  - CARDIOMEGALY [None]
